FAERS Safety Report 8954104 (Version 1)
Quarter: 2012Q4

REPORT INFORMATION
  Report Type: 
  Country: US (occurrence: US)
  Receive Date: 20121207
  Receipt Date: 20121207
  Transmission Date: 20130627
  Serious: No
  Sender: FDA-Public Use
  Company Number: US-009507513-1212USA001440

PATIENT
  Age: 25 Year
  Sex: Female
  Weight: 97.51 kg

DRUGS (2)
  1. IMPLANON [Suspect]
     Indication: AMENORRHOEA
     Dosage: once every 3 years
     Route: 059
     Dates: start: 201109
  2. SYNTHROID [Concomitant]

REACTIONS (8)
  - Contact lens intolerance [Unknown]
  - Weight increased [Unknown]
  - Acne [Unknown]
  - Headache [Unknown]
  - Hirsutism [Unknown]
  - Dizziness [Unknown]
  - Depression [Unknown]
  - Mood swings [Unknown]
